FAERS Safety Report 17430618 (Version 1)
Quarter: 2020Q1

REPORT INFORMATION
  Report Type: Spontaneous
  Country: US (occurrence: US)
  Receive Date: 20200216
  Receipt Date: 20200216
  Transmission Date: 20200409
  Serious: No
  Sender: FDA-Public Use
  Company Number: None

PATIENT
  Sex: Female
  Weight: 49.5 kg

DRUGS (6)
  1. VITAFUSION  MULTIVITAMINS [Concomitant]
  2. DEXEDRINE [Concomitant]
     Active Substance: DEXTROAMPHETAMINE SULFATE
  3. SPIRONOLACTONE. [Concomitant]
     Active Substance: SPIRONOLACTONE
  4. MAGNESIUM GLYCINATE SUPPLEMENT [Concomitant]
  5. BUPROPION 300MG XL TAB [Suspect]
     Active Substance: BUPROPION HYDROCHLORIDE
     Indication: DEPRESSION
     Dosage: ?          QUANTITY:1 TABLET(S);?
     Route: 048
  6. BIOTIN [Concomitant]
     Active Substance: BIOTIN

REACTIONS (9)
  - Anxiety [None]
  - Anger [None]
  - Drug ineffective [None]
  - Tremor [None]
  - Tension [None]
  - Tinnitus [None]
  - Feeling abnormal [None]
  - Irritability [None]
  - Product substitution issue [None]
